FAERS Safety Report 5187504-1 (Version None)
Quarter: 2006Q4

REPORT INFORMATION
  Report Type: 
  Country: None (occurrence: None)
  Receive Date: 20061220
  Receipt Date: 20060321
  Transmission Date: 20070319
  Serious: No
  Sender: FDA-Public Use
  Company Number: US-AMGEN-US173265

PATIENT
  Sex: Female

DRUGS (6)
  1. ENBREL [Suspect]
     Indication: RHEUMATOID ARTHRITIS
     Route: 058
     Dates: start: 20060131, end: 20060312
  2. ZYRTEC [Concomitant]
     Route: 065
  3. CELEBREX [Concomitant]
     Dates: start: 20030825, end: 20060322
  4. AMARYL [Concomitant]
  5. LISINOPRIL [Concomitant]
  6. TOPROL-XL [Concomitant]

REACTIONS (3)
  - INJECTION SITE ERYTHEMA [None]
  - MULTIPLE ALLERGIES [None]
  - URTICARIA [None]
